FAERS Safety Report 10069915 (Version 2)
Quarter: 2014Q2

REPORT INFORMATION
  Report Type: Spontaneous
  Country: US (occurrence: US)
  Receive Date: 20140410
  Receipt Date: 20140603
  Transmission Date: 20141212
  Serious: No
  Sender: FDA-Public Use
  Company Number: US-JNJFOC-20140319491

PATIENT
  Sex: Male

DRUGS (7)
  1. DURAGESIC [Suspect]
     Indication: BACK PAIN
     Route: 062
  2. DURAGESIC [Suspect]
     Indication: BACK PAIN
     Route: 062
  3. DURAGESIC [Suspect]
     Indication: BACK PAIN
     Route: 062
  4. DURAGESIC [Suspect]
     Indication: BACK PAIN
     Route: 062
  5. LISINOPRIL [Concomitant]
     Indication: BLOOD PRESSURE
     Route: 048
  6. CARDIZEM [Concomitant]
     Indication: BLOOD PRESSURE
     Route: 048
  7. CRESTOR [Concomitant]
     Route: 065

REACTIONS (15)
  - Wrong technique in drug usage process [Unknown]
  - Adverse event [Unknown]
  - Acne [Recovered/Resolved]
  - Erythema [Not Recovered/Not Resolved]
  - Miliaria [Not Recovered/Not Resolved]
  - Wrong technique in drug usage process [Unknown]
  - Product quality issue [Unknown]
  - Wrong technique in drug usage process [Unknown]
  - Wrong technique in drug usage process [Unknown]
  - Drug dose omission [Unknown]
  - Skin lesion [Unknown]
  - Wrong technique in drug usage process [Unknown]
  - Wrong technique in drug usage process [Unknown]
  - Weight increased [Unknown]
  - Abnormal loss of weight [Unknown]
